FAERS Safety Report 6012158-1 (Version None)
Quarter: 2008Q4

REPORT INFORMATION
  Report Type: 
  Country: None (occurrence: None)
  Receive Date: 20081218
  Receipt Date: 20081209
  Transmission Date: 20090506
  Serious: Yes (Other)
  Sender: FDA-Public Use
  Company Number: US-SANOFI-SYNTHELABO-A03200804998

PATIENT
  Age: 5 Year
  Sex: Female

DRUGS (1)
  1. AMBIEN [Suspect]
     Indication: INTENTIONAL DRUG MISUSE
     Route: 048
     Dates: start: 20080101

REACTIONS (2)
  - INTENTIONAL DRUG MISUSE [None]
  - VICTIM OF SEXUAL ABUSE [None]
